FAERS Safety Report 20967093 (Version 1)
Quarter: 2022Q2

REPORT INFORMATION
  Report Type: Spontaneous
  Country: JP (occurrence: JP)
  Receive Date: 20220616
  Receipt Date: 20220616
  Transmission Date: 20220721
  Serious: Yes (Other)
  Sender: FDA-Public Use
  Company Number: JP-BAYER-2022A081971

PATIENT

DRUGS (1)
  1. EYLEA [Suspect]
     Active Substance: AFLIBERCEPT
     Indication: Retinal vein occlusion
     Dosage: SOLUTION FOR INJECTION
     Route: 031

REACTIONS (3)
  - Retinal exudates [Unknown]
  - Retinal haemorrhage [Unknown]
  - Retinal artery occlusion [Unknown]
